FAERS Safety Report 22604238 (Version 1)
Quarter: 2023Q2

REPORT INFORMATION
  Report Type: Spontaneous
  Country: US (occurrence: US)
  Receive Date: 20230615
  Receipt Date: 20230615
  Transmission Date: 20230721
  Serious: Yes (Hospitalization, Other)
  Sender: FDA-Public Use
  Company Number: US-MYLANLABS-2023M1062205

PATIENT
  Age: 7 Decade
  Sex: Male

DRUGS (15)
  1. PAROXETINE [Suspect]
     Active Substance: PAROXETINE
     Indication: Insomnia
     Dosage: UNK
     Route: 065
     Dates: start: 2016
  2. PAROXETINE [Suspect]
     Active Substance: PAROXETINE
     Indication: Depression
     Dosage: UNK, INITIALLY DOSE INCREASED AND DRUG STOPPED AFTERWARDS
     Route: 065
  3. PAROXETINE [Suspect]
     Active Substance: PAROXETINE
     Indication: Anxiety
  4. DIPHENHYDRAMINE [Suspect]
     Active Substance: DIPHENHYDRAMINE
     Indication: Insomnia
     Dosage: 100 MILLIGRAM, QD (NIGHTLY)
     Route: 065
  5. DIPHENHYDRAMINE [Suspect]
     Active Substance: DIPHENHYDRAMINE
     Indication: Anxiety
  6. LORAZEPAM [Suspect]
     Active Substance: LORAZEPAM
     Indication: Depression
     Dosage: UNK
     Route: 065
     Dates: start: 2016
  7. LORAZEPAM [Suspect]
     Active Substance: LORAZEPAM
     Indication: Anxiety
     Dosage: 3 MILLIGRAM, QD (NIGHTLY) DOSE INCREASED TREATMENT CONTINUED
     Route: 065
  8. LORAZEPAM [Suspect]
     Active Substance: LORAZEPAM
     Indication: Insomnia
  9. TEMAZEPAM [Suspect]
     Active Substance: TEMAZEPAM
     Indication: Depression
     Dosage: UNK
     Route: 065
     Dates: start: 2016
  10. TEMAZEPAM [Suspect]
     Active Substance: TEMAZEPAM
     Indication: Anxiety
     Dosage: UNK UNK, QD (15-30MG; NIGHTLY) DOSE INCREASED TREATMENT CONTINUED
     Route: 065
  11. TEMAZEPAM [Suspect]
     Active Substance: TEMAZEPAM
     Indication: Insomnia
  12. 4-AMINO-3-PHENYLBUTYRIC ACID [Suspect]
     Active Substance: 4-AMINO-3-PHENYLBUTYRIC ACID
     Indication: Insomnia
     Dosage: UNK, PILL
     Route: 065
  13. 4-AMINO-3-PHENYLBUTYRIC ACID [Suspect]
     Active Substance: 4-AMINO-3-PHENYLBUTYRIC ACID
     Indication: Anxiety
  14. 4-AMINO-3-PHENYLBUTYRIC ACID [Suspect]
     Active Substance: 4-AMINO-3-PHENYLBUTYRIC ACID
     Indication: Insomnia
     Dosage: 3 GRAM, QD (NIGHTLY)
     Route: 065
  15. 4-AMINO-3-PHENYLBUTYRIC ACID [Suspect]
     Active Substance: 4-AMINO-3-PHENYLBUTYRIC ACID
     Indication: Anxiety
     Dosage: 7 GRAM, QD (IN JUICE)
     Route: 065

REACTIONS (2)
  - Intentional product misuse [Recovering/Resolving]
  - Drug tolerance [Unknown]
